FAERS Safety Report 16076901 (Version 1)
Quarter: 2019Q1

REPORT INFORMATION
  Report Type: Spontaneous
  Country: US (occurrence: US)
  Receive Date: 20190315
  Receipt Date: 20190315
  Transmission Date: 20190418
  Serious: No
  Sender: FDA-Public Use
  Company Number: US-GLAXOSMITHKLINE-US2019043021

PATIENT
  Sex: Female

DRUGS (2)
  1. ALBUTEROL INHALATION POWDER [Suspect]
     Active Substance: ALBUTEROL
     Indication: EMPHYSEMA
     Dosage: UNK
     Route: 055
  2. VENTOLIN HFA [Suspect]
     Active Substance: ALBUTEROL SULFATE
     Indication: EMPHYSEMA
     Dosage: 2 PUFFS BY MOUTH EVERY 4 HOURS AS NEEDED
     Route: 055

REACTIONS (2)
  - Wrong technique in device usage process [Unknown]
  - Wrong technique in product usage process [Unknown]
